FAERS Safety Report 4758844-2 (Version None)
Quarter: 2005Q3

REPORT INFORMATION
  Report Type: 
  Country: None (occurrence: None)
  Receive Date: 20050901
  Receipt Date: 20050721
  Transmission Date: 20060218
  Serious: Yes (Hospitalization, Disabling)
  Sender: FDA-Public Use
  Company Number: US-MERCK-0507USA03350

PATIENT
  Age: 73 Year
  Sex: Male
  Weight: 90 kg

DRUGS (2)
  1. VIOXX [Suspect]
     Indication: ARTHRALGIA
     Route: 048
     Dates: start: 20010101, end: 20040401
  2. ASPIRIN [Concomitant]
     Route: 065

REACTIONS (4)
  - CARDIAC ARREST [None]
  - CARDIAC DISORDER [None]
  - DEPRESSION [None]
  - MYOCARDIAL INFARCTION [None]
